FAERS Safety Report 11723298 (Version 1)
Quarter: 2015Q4

REPORT INFORMATION
  Report Type: Spontaneous
  Country: US (occurrence: US)
  Receive Date: 20151111
  Receipt Date: 20151111
  Transmission Date: 20160304
  Serious: Yes (Other)
  Sender: FDA-Public Use
  Company Number: US-GLAXOSMITHKLINE-US2015157618

PATIENT
  Age: 50 Year
  Sex: Male

DRUGS (2)
  1. LAMICTAL [Suspect]
     Active Substance: LAMOTRIGINE
     Indication: SEIZURE
     Dosage: 200 MG, QD
     Route: 048
     Dates: start: 2000
  2. LAMOTRIGINE. [Suspect]
     Active Substance: LAMOTRIGINE
     Indication: SEIZURE
     Dosage: 200 MG, QD
     Route: 048
     Dates: start: 2008

REACTIONS (4)
  - Seizure [Unknown]
  - Drug ineffective [Unknown]
  - Condition aggravated [Unknown]
  - Glioblastoma [Unknown]

NARRATIVE: CASE EVENT DATE: 2000
